FAERS Safety Report 4789395-7 (Version None)
Quarter: 2005Q3

REPORT INFORMATION
  Report Type: 
  Country: None (occurrence: None)
  Receive Date: 20050929
  Receipt Date: 20050727
  Transmission Date: 20060218
  Serious: No
  Sender: FDA-Public Use
  Company Number: 05P-163-0306820-00

PATIENT
  Age: 73 Year
  Sex: Female

DRUGS (6)
  1. HUMIRA [Suspect]
     Indication: RHEUMATOID ARTHRITIS
     Dosage: 40 MG, 1 IN 2 WK, SUBCUTANEOUS
     Route: 058
     Dates: start: 20050401, end: 20050701
  2. METHOTREXATE [Concomitant]
  3. HYDROXYCHLOROQUINE PHOSPHATE [Concomitant]
  4. THYROID TAB [Concomitant]
  5. IRBESARTAN [Concomitant]
  6. SPIRONOLACTONE [Concomitant]

REACTIONS (5)
  - BRONCHITIS [None]
  - FATIGUE [None]
  - INJECTION SITE IRRITATION [None]
  - PNEUMONITIS [None]
  - WEIGHT DECREASED [None]
